FAERS Safety Report 5256188-6 (Version None)
Quarter: 2007Q1

REPORT INFORMATION
  Report Type: 
  Country: None (occurrence: None)
  Receive Date: 20070306
  Receipt Date: 20070227
  Transmission Date: 20070707
  Serious: Yes (Life-Threatening, Hospitalization)
  Sender: FDA-Public Use
  Company Number: PT-AVENTIS-200711772GDDC

PATIENT
  Age: 73 Year
  Sex: Female
  Weight: 90 kg

DRUGS (6)
  1. TAXOTERE [Suspect]
     Route: 042
     Dates: start: 20070131, end: 20070131
  2. METFORMIN HYDROCHLORIDE [Concomitant]
     Route: 048
  3. GLIBENCLAMIDE [Concomitant]
     Route: 048
  4. ACETAMINOPHEN [Concomitant]
  5. ROSUVASTATIN CALCIUM [Concomitant]
     Route: 048
  6. PREDNISOLONE [Concomitant]
     Indication: PREMEDICATION
     Route: 048

REACTIONS (2)
  - ANAPHYLACTIC SHOCK [None]
  - CARDIAC ARREST [None]
